FAERS Safety Report 5028323-6 (Version None)
Quarter: 2006Q2

REPORT INFORMATION
  Report Type: 
  Country: None (occurrence: None)
  Receive Date: 20060503
  Receipt Date: 20060203
  Transmission Date: 20061013
  Serious: No
  Sender: FDA-Public Use
  Company Number: FACT0600068

PATIENT
  Age: 53 Year
  Sex: Male
  Weight: 69.4 kg

DRUGS (8)
  1. FACTIVE [Suspect]
     Indication: RESPIRATORY TRACT INFECTION BACTERIAL
     Dosage: 320 MG, QD, ORAL
     Route: 048
     Dates: start: 20060202, end: 20060202
  2. GLYBURIDE [Concomitant]
  3. GLUCOPHAGE [Concomitant]
  4. LIPITOR [Concomitant]
  5. ASPIRIN [Concomitant]
  6. ACETAMINOPHEN [Concomitant]
  7. DILTIAZEM [Concomitant]
  8. ENALAPRIL MALEATE [Concomitant]

REACTIONS (1)
  - RASH PAPULAR [None]
